FAERS Safety Report 12317989 (Version 2)
Quarter: 2017Q3

REPORT INFORMATION
  Report Type: Spontaneous
  Country: US (occurrence: US)
  Receive Date: 20160429
  Receipt Date: 20170922
  Transmission Date: 20171127
  Serious: No
  Sender: FDA-Public Use
  Company Number: US-TEVA-651895USA

PATIENT
  Age: 43 Year
  Sex: Male

DRUGS (1)
  1. COPAXONE [Suspect]
     Active Substance: GLATIRAMER ACETATE
     Indication: MULTIPLE SCLEROSIS
     Dosage: PRE FILLED SYRINGE
     Route: 058
     Dates: start: 20140917

REACTIONS (2)
  - Fall [Not Recovered/Not Resolved]
  - Motor dysfunction [Unknown]

NARRATIVE: CASE EVENT DATE: 20160407
